FAERS Safety Report 8305520-5 (Version None)
Quarter: 2012Q2

REPORT INFORMATION
  Report Type: 
  Country: None (occurrence: None)
  Receive Date: 20120423
  Receipt Date: 20120416
  Transmission Date: 20120825
  Serious: Yes (Hospitalization)
  Sender: FDA-Public Use
  Company Number: JP-GLAXOSMITHKLINE-B0795392A

PATIENT
  Sex: Female

DRUGS (8)
  1. SENNA-MINT WAF [Concomitant]
     Route: 048
  2. MEILAX [Concomitant]
     Route: 048
  3. LAMICTAL [Suspect]
     Indication: DEPRESSION
     Dosage: 50MG PER DAY
     Route: 048
     Dates: start: 20120312, end: 20120409
  4. XYZAL [Concomitant]
     Route: 048
  5. GOODMIN [Concomitant]
     Route: 048
  6. FAMOTIDINE [Concomitant]
     Route: 048
  7. ALLEGRA [Concomitant]
     Route: 048
  8. SEROQUEL [Concomitant]
     Route: 048

REACTIONS (7)
  - PYREXIA [None]
  - ERYTHEMA [None]
  - STOMATITIS [None]
  - MALAISE [None]
  - WHITE BLOOD CELL COUNT DECREASED [None]
  - FACE OEDEMA [None]
  - LIP EROSION [None]
